FAERS Safety Report 7917005-6 (Version None)
Quarter: 2011Q4

REPORT INFORMATION
  Report Type: 
  Country: None (occurrence: None)
  Receive Date: 20111114
  Receipt Date: 20111031
  Transmission Date: 20120403
  Serious: Yes (Life-Threatening, Hospitalization)
  Sender: FDA-Public Use
  Company Number: 2011P1009906

PATIENT
  Age: 4 Year
  Sex: Male

DRUGS (1)
  1. ALBENDAZOLE (NO PREF. NAME) [Suspect]
     Dosage: 2 TABLETS, QD
     Dates: start: 20111014, end: 20111015

REACTIONS (2)
  - ABDOMINAL PAIN [None]
  - DIARRHOEA [None]
